FAERS Safety Report 20567684 (Version 4)
Quarter: 2023Q1

REPORT INFORMATION
  Report Type: Other
  Country: GB (occurrence: None)
  Receive Date: 20220308
  Receipt Date: 20230331
  Transmission Date: 20230418
  Serious: Yes (Other)
  Sender: FDA-Public Use
  Company Number: GB-ROCHE-3039385

PATIENT
  Sex: Female

DRUGS (9)
  1. TOCILIZUMAB [Suspect]
     Active Substance: TOCILIZUMAB
     Indication: Rheumatoid arthritis
     Route: 058
     Dates: start: 20170208
  2. BISOPROLOL [Concomitant]
     Active Substance: BISOPROLOL
  3. LANSOPRAZOLE [Concomitant]
     Active Substance: LANSOPRAZOLE
  4. ZOPICLONE [Concomitant]
     Active Substance: ZOPICLONE
  5. TRAMADOL [Concomitant]
     Active Substance: TRAMADOL
  6. LISINOPRIL [Concomitant]
     Active Substance: LISINOPRIL
     Dosage: 10MG AND SAME ONE 20 MG - ADDS UP TO 30 MG A DAY
  7. ATORVASTATIN [Concomitant]
     Active Substance: ATORVASTATIN
  8. CALCIUM [Concomitant]
     Active Substance: CALCIUM
  9. ACETAMINOPHEN [Concomitant]
     Active Substance: ACETAMINOPHEN

REACTIONS (10)
  - Ulcer haemorrhage [Unknown]
  - Malaise [Unknown]
  - Contusion [Unknown]
  - Rheumatoid arthritis [Unknown]
  - Feeding disorder [Unknown]
  - Localised infection [Unknown]
  - Tooth infection [Unknown]
  - Condition aggravated [Unknown]
  - Nail bed bleeding [Unknown]
  - Toothache [Unknown]
